FAERS Safety Report 25817043 (Version 3)
Quarter: 2025Q4

REPORT INFORMATION
  Report Type: Report from Study
  Country: EU (occurrence: EU)
  Receive Date: 20250918
  Receipt Date: 20251202
  Transmission Date: 20260117
  Serious: Yes (Hospitalization, Other)
  Sender: MYLAN
  Company Number: EU-SA-2023SA317625

PATIENT
  Age: 74 Year
  Sex: Male
  Weight: 63 kg

DRUGS (268)
  1. DEXAMETHASONE [Suspect]
     Active Substance: DEXAMETHASONE
     Indication: Plasma cell myeloma refractory
     Dosage: 20 MILLIGRAM, QW
     Route: 065
     Dates: start: 20220926, end: 20221024
  2. DEXAMETHASONE [Suspect]
     Active Substance: DEXAMETHASONE
     Dosage: 20 MILLIGRAM, QW
     Dates: start: 20220926, end: 20221024
  3. DEXAMETHASONE [Suspect]
     Active Substance: DEXAMETHASONE
     Dosage: 20 MILLIGRAM, QW
     Dates: start: 20220926, end: 20221024
  4. DEXAMETHASONE [Suspect]
     Active Substance: DEXAMETHASONE
     Dosage: 20 MILLIGRAM, QW
     Route: 065
     Dates: start: 20220926, end: 20221024
  5. DEXAMETHASONE [Suspect]
     Active Substance: DEXAMETHASONE
     Dosage: 20 MILLIGRAM, QW
     Dates: start: 20221025, end: 20221121
  6. DEXAMETHASONE [Suspect]
     Active Substance: DEXAMETHASONE
     Dosage: 20 MILLIGRAM, QW
     Dates: start: 20221025, end: 20221121
  7. DEXAMETHASONE [Suspect]
     Active Substance: DEXAMETHASONE
     Dosage: 20 MILLIGRAM, QW
     Route: 065
     Dates: start: 20221025, end: 20221121
  8. DEXAMETHASONE [Suspect]
     Active Substance: DEXAMETHASONE
     Dosage: 20 MILLIGRAM, QW
     Route: 065
     Dates: start: 20221025, end: 20221121
  9. DEXAMETHASONE [Suspect]
     Active Substance: DEXAMETHASONE
     Dosage: 20 MILLIGRAM, QW
     Dates: start: 20221122, end: 20230119
  10. DEXAMETHASONE [Suspect]
     Active Substance: DEXAMETHASONE
     Dosage: 20 MILLIGRAM, QW
     Route: 065
     Dates: start: 20221122, end: 20230119
  11. DEXAMETHASONE [Suspect]
     Active Substance: DEXAMETHASONE
     Dosage: 20 MILLIGRAM, QW
     Dates: start: 20221122, end: 20230119
  12. DEXAMETHASONE [Suspect]
     Active Substance: DEXAMETHASONE
     Dosage: 20 MILLIGRAM, QW
     Route: 065
     Dates: start: 20221122, end: 20230119
  13. DEXAMETHASONE [Suspect]
     Active Substance: DEXAMETHASONE
     Dosage: 10 MILLIGRAM, QW
     Route: 065
     Dates: start: 20230217, end: 20230302
  14. DEXAMETHASONE [Suspect]
     Active Substance: DEXAMETHASONE
     Dosage: 10 MILLIGRAM, QW
     Dates: start: 20230217, end: 20230302
  15. DEXAMETHASONE [Suspect]
     Active Substance: DEXAMETHASONE
     Dosage: 10 MILLIGRAM, QW
     Dates: start: 20230217, end: 20230302
  16. DEXAMETHASONE [Suspect]
     Active Substance: DEXAMETHASONE
     Dosage: 10 MILLIGRAM, QW
     Route: 065
     Dates: start: 20230217, end: 20230302
  17. DEXAMETHASONE [Suspect]
     Active Substance: DEXAMETHASONE
     Dosage: 20 MILLIGRAM, QW
     Route: 065
     Dates: start: 20230726, end: 20230823
  18. DEXAMETHASONE [Suspect]
     Active Substance: DEXAMETHASONE
     Dosage: 20 MILLIGRAM, QW
     Dates: start: 20230726, end: 20230823
  19. DEXAMETHASONE [Suspect]
     Active Substance: DEXAMETHASONE
     Dosage: 20 MILLIGRAM, QW
     Dates: start: 20230726, end: 20230823
  20. DEXAMETHASONE [Suspect]
     Active Substance: DEXAMETHASONE
     Dosage: 20 MILLIGRAM, QW
     Route: 065
     Dates: start: 20230726, end: 20230823
  21. DEXAMETHASONE [Suspect]
     Active Substance: DEXAMETHASONE
     Dosage: 20 MILLIGRAM, QW
     Route: 065
     Dates: start: 20240208, end: 20240306
  22. DEXAMETHASONE [Suspect]
     Active Substance: DEXAMETHASONE
     Dosage: 20 MILLIGRAM, QW
     Dates: start: 20240208, end: 20240306
  23. DEXAMETHASONE [Suspect]
     Active Substance: DEXAMETHASONE
     Dosage: 20 MILLIGRAM, QW
     Dates: start: 20240208, end: 20240306
  24. DEXAMETHASONE [Suspect]
     Active Substance: DEXAMETHASONE
     Dosage: 20 MILLIGRAM, QW
     Route: 065
     Dates: start: 20240208, end: 20240306
  25. DEXAMETHASONE [Suspect]
     Active Substance: DEXAMETHASONE
     Dosage: 20 MILLIGRAM, QW
     Dates: start: 20240307, end: 20240320
  26. DEXAMETHASONE [Suspect]
     Active Substance: DEXAMETHASONE
     Dosage: 20 MILLIGRAM, QW
     Dates: start: 20240307, end: 20240320
  27. DEXAMETHASONE [Suspect]
     Active Substance: DEXAMETHASONE
     Dosage: 20 MILLIGRAM, QW
     Route: 065
     Dates: start: 20240307, end: 20240320
  28. DEXAMETHASONE [Suspect]
     Active Substance: DEXAMETHASONE
     Dosage: 20 MILLIGRAM, QW
     Route: 065
     Dates: start: 20240307, end: 20240320
  29. DEXAMETHASONE [Suspect]
     Active Substance: DEXAMETHASONE
     Dosage: 20 MILLIGRAM, QW
     Dates: start: 20240411, end: 20240424
  30. DEXAMETHASONE [Suspect]
     Active Substance: DEXAMETHASONE
     Dosage: 20 MILLIGRAM, QW
     Dates: start: 20240411, end: 20240424
  31. DEXAMETHASONE [Suspect]
     Active Substance: DEXAMETHASONE
     Dosage: 20 MILLIGRAM, QW
     Route: 065
     Dates: start: 20240411, end: 20240424
  32. DEXAMETHASONE [Suspect]
     Active Substance: DEXAMETHASONE
     Dosage: 20 MILLIGRAM, QW
     Route: 065
     Dates: start: 20240411, end: 20240424
  33. ISATUXIMAB [Suspect]
     Active Substance: ISATUXIMAB
     Indication: Plasma cell myeloma refractory
     Dosage: 10 MILLIGRAM/KILOGRAM, QW
     Dates: start: 20220926, end: 20221024
  34. ISATUXIMAB [Suspect]
     Active Substance: ISATUXIMAB
     Dosage: 10 MILLIGRAM/KILOGRAM, QW
     Dates: start: 20220926, end: 20221024
  35. ISATUXIMAB [Suspect]
     Active Substance: ISATUXIMAB
     Dosage: 10 MILLIGRAM/KILOGRAM, QW
     Route: 042
     Dates: start: 20220926, end: 20221024
  36. ISATUXIMAB [Suspect]
     Active Substance: ISATUXIMAB
     Dosage: 10 MILLIGRAM/KILOGRAM, QW
     Route: 042
     Dates: start: 20220926, end: 20221024
  37. ISATUXIMAB [Suspect]
     Active Substance: ISATUXIMAB
     Dosage: 10 MILLIGRAM/KILOGRAM, BIWEEKLY (20 MILLIGRAM/KILOGRAM, QW)
     Route: 042
     Dates: start: 20221025, end: 20221121
  38. ISATUXIMAB [Suspect]
     Active Substance: ISATUXIMAB
     Dosage: 10 MILLIGRAM/KILOGRAM, BIWEEKLY (20 MILLIGRAM/KILOGRAM, QW)
     Dates: start: 20221025, end: 20221121
  39. ISATUXIMAB [Suspect]
     Active Substance: ISATUXIMAB
     Dosage: 10 MILLIGRAM/KILOGRAM, BIWEEKLY (20 MILLIGRAM/KILOGRAM, QW)
     Dates: start: 20221025, end: 20221121
  40. ISATUXIMAB [Suspect]
     Active Substance: ISATUXIMAB
     Dosage: 10 MILLIGRAM/KILOGRAM, BIWEEKLY (20 MILLIGRAM/KILOGRAM, QW)
     Route: 042
     Dates: start: 20221025, end: 20221121
  41. ISATUXIMAB [Suspect]
     Active Substance: ISATUXIMAB
     Dosage: 10 MILLIGRAM/KILOGRAM, BIWEEKLY (20 MILLIGRAM/KILOGRAM, QW)
     Dates: start: 20221122, end: 20230119
  42. ISATUXIMAB [Suspect]
     Active Substance: ISATUXIMAB
     Dosage: 10 MILLIGRAM/KILOGRAM, BIWEEKLY (20 MILLIGRAM/KILOGRAM, QW)
     Dates: start: 20221122, end: 20230119
  43. ISATUXIMAB [Suspect]
     Active Substance: ISATUXIMAB
     Dosage: 10 MILLIGRAM/KILOGRAM, BIWEEKLY (20 MILLIGRAM/KILOGRAM, QW)
     Route: 042
     Dates: start: 20221122, end: 20230119
  44. ISATUXIMAB [Suspect]
     Active Substance: ISATUXIMAB
     Dosage: 10 MILLIGRAM/KILOGRAM, BIWEEKLY (20 MILLIGRAM/KILOGRAM, QW)
     Route: 042
     Dates: start: 20221122, end: 20230119
  45. ISATUXIMAB [Suspect]
     Active Substance: ISATUXIMAB
     Dosage: 10 MILLIGRAM/KILOGRAM, BIWEEKLY (20 MILLIGRAM/KILOGRAM, QW)
     Dates: start: 20230120, end: 20230202
  46. ISATUXIMAB [Suspect]
     Active Substance: ISATUXIMAB
     Dosage: 10 MILLIGRAM/KILOGRAM, BIWEEKLY (20 MILLIGRAM/KILOGRAM, QW)
     Dates: start: 20230120, end: 20230202
  47. ISATUXIMAB [Suspect]
     Active Substance: ISATUXIMAB
     Dosage: 10 MILLIGRAM/KILOGRAM, BIWEEKLY (20 MILLIGRAM/KILOGRAM, QW)
     Route: 042
     Dates: start: 20230120, end: 20230202
  48. ISATUXIMAB [Suspect]
     Active Substance: ISATUXIMAB
     Dosage: 10 MILLIGRAM/KILOGRAM, BIWEEKLY (20 MILLIGRAM/KILOGRAM, QW)
     Route: 042
     Dates: start: 20230120, end: 20230202
  49. ISATUXIMAB [Suspect]
     Active Substance: ISATUXIMAB
     Dosage: 10 MILLIGRAM/KILOGRAM, BIWEEKLY (20 MILLIGRAM/KILOGRAM, QW)
     Route: 042
     Dates: start: 20230217, end: 20230302
  50. ISATUXIMAB [Suspect]
     Active Substance: ISATUXIMAB
     Dosage: 10 MILLIGRAM/KILOGRAM, BIWEEKLY (20 MILLIGRAM/KILOGRAM, QW)
     Dates: start: 20230217, end: 20230302
  51. ISATUXIMAB [Suspect]
     Active Substance: ISATUXIMAB
     Dosage: 10 MILLIGRAM/KILOGRAM, BIWEEKLY (20 MILLIGRAM/KILOGRAM, QW)
     Dates: start: 20230217, end: 20230302
  52. ISATUXIMAB [Suspect]
     Active Substance: ISATUXIMAB
     Dosage: 10 MILLIGRAM/KILOGRAM, BIWEEKLY (20 MILLIGRAM/KILOGRAM, QW)
     Route: 042
     Dates: start: 20230217, end: 20230302
  53. ISATUXIMAB [Suspect]
     Active Substance: ISATUXIMAB
     Dosage: 10 MILLIGRAM/KILOGRAM, BIWEEKLY (20 MILLIGRAM/KILOGRAM, QW)
     Dates: start: 20230329, end: 20230504
  54. ISATUXIMAB [Suspect]
     Active Substance: ISATUXIMAB
     Dosage: 10 MILLIGRAM/KILOGRAM, BIWEEKLY (20 MILLIGRAM/KILOGRAM, QW)
     Dates: start: 20230329, end: 20230504
  55. ISATUXIMAB [Suspect]
     Active Substance: ISATUXIMAB
     Dosage: 10 MILLIGRAM/KILOGRAM, BIWEEKLY (20 MILLIGRAM/KILOGRAM, QW)
     Route: 042
     Dates: start: 20230329, end: 20230504
  56. ISATUXIMAB [Suspect]
     Active Substance: ISATUXIMAB
     Dosage: 10 MILLIGRAM/KILOGRAM, BIWEEKLY (20 MILLIGRAM/KILOGRAM, QW)
     Route: 042
     Dates: start: 20230329, end: 20230504
  57. ISATUXIMAB [Suspect]
     Active Substance: ISATUXIMAB
     Dosage: 10 MILLIGRAM/KILOGRAM, BIWEEKLY (20 MILLIGRAM/KILOGRAM, QW)
     Dates: start: 20230505, end: 20230601
  58. ISATUXIMAB [Suspect]
     Active Substance: ISATUXIMAB
     Dosage: 10 MILLIGRAM/KILOGRAM, BIWEEKLY (20 MILLIGRAM/KILOGRAM, QW)
     Dates: start: 20230505, end: 20230601
  59. ISATUXIMAB [Suspect]
     Active Substance: ISATUXIMAB
     Dosage: 10 MILLIGRAM/KILOGRAM, BIWEEKLY (20 MILLIGRAM/KILOGRAM, QW)
     Route: 042
     Dates: start: 20230505, end: 20230601
  60. ISATUXIMAB [Suspect]
     Active Substance: ISATUXIMAB
     Dosage: 10 MILLIGRAM/KILOGRAM, BIWEEKLY (20 MILLIGRAM/KILOGRAM, QW)
     Route: 042
     Dates: start: 20230505, end: 20230601
  61. ISATUXIMAB [Suspect]
     Active Substance: ISATUXIMAB
     Dosage: 10 MILLIGRAM/KILOGRAM, BIWEEKLY (20 MILLIGRAM/KILOGRAM, QW)
     Dates: start: 20230602, end: 20230615
  62. ISATUXIMAB [Suspect]
     Active Substance: ISATUXIMAB
     Dosage: 10 MILLIGRAM/KILOGRAM, BIWEEKLY (20 MILLIGRAM/KILOGRAM, QW)
     Dates: start: 20230602, end: 20230615
  63. ISATUXIMAB [Suspect]
     Active Substance: ISATUXIMAB
     Dosage: 10 MILLIGRAM/KILOGRAM, BIWEEKLY (20 MILLIGRAM/KILOGRAM, QW)
     Route: 042
     Dates: start: 20230602, end: 20230615
  64. ISATUXIMAB [Suspect]
     Active Substance: ISATUXIMAB
     Dosage: 10 MILLIGRAM/KILOGRAM, BIWEEKLY (20 MILLIGRAM/KILOGRAM, QW)
     Route: 042
     Dates: start: 20230602, end: 20230615
  65. ISATUXIMAB [Suspect]
     Active Substance: ISATUXIMAB
     Dosage: 10 MILLIGRAM/KILOGRAM, BIWEEKLY (20 MILLIGRAM/KILOGRAM, QW)
     Dates: start: 20230630, end: 20230713
  66. ISATUXIMAB [Suspect]
     Active Substance: ISATUXIMAB
     Dosage: 10 MILLIGRAM/KILOGRAM, BIWEEKLY (20 MILLIGRAM/KILOGRAM, QW)
     Dates: start: 20230630, end: 20230713
  67. ISATUXIMAB [Suspect]
     Active Substance: ISATUXIMAB
     Dosage: 10 MILLIGRAM/KILOGRAM, BIWEEKLY (20 MILLIGRAM/KILOGRAM, QW)
     Route: 065
     Dates: start: 20230630, end: 20230713
  68. ISATUXIMAB [Suspect]
     Active Substance: ISATUXIMAB
     Dosage: 10 MILLIGRAM/KILOGRAM, BIWEEKLY (20 MILLIGRAM/KILOGRAM, QW)
     Route: 065
     Dates: start: 20230630, end: 20230713
  69. ISATUXIMAB [Suspect]
     Active Substance: ISATUXIMAB
     Dosage: 10 MILLIGRAM/KILOGRAM, BIWEEKLY (20 MILLIGRAM/KILOGRAM, QW)
     Dates: start: 20230726, end: 20230823
  70. ISATUXIMAB [Suspect]
     Active Substance: ISATUXIMAB
     Dosage: 10 MILLIGRAM/KILOGRAM, BIWEEKLY (20 MILLIGRAM/KILOGRAM, QW)
     Route: 065
     Dates: start: 20230726, end: 20230823
  71. ISATUXIMAB [Suspect]
     Active Substance: ISATUXIMAB
     Dosage: 10 MILLIGRAM/KILOGRAM, BIWEEKLY (20 MILLIGRAM/KILOGRAM, QW)
     Dates: start: 20230726, end: 20230823
  72. ISATUXIMAB [Suspect]
     Active Substance: ISATUXIMAB
     Dosage: 10 MILLIGRAM/KILOGRAM, BIWEEKLY (20 MILLIGRAM/KILOGRAM, QW)
     Route: 065
     Dates: start: 20230726, end: 20230823
  73. ISATUXIMAB [Suspect]
     Active Substance: ISATUXIMAB
     Dosage: 10 MILLIGRAM/KILOGRAM, BIWEEKLY (20 MILLIGRAM/KILOGRAM, QW)
     Dates: start: 20230824, end: 20231005
  74. ISATUXIMAB [Suspect]
     Active Substance: ISATUXIMAB
     Dosage: 10 MILLIGRAM/KILOGRAM, BIWEEKLY (20 MILLIGRAM/KILOGRAM, QW)
     Dates: start: 20230824, end: 20231005
  75. ISATUXIMAB [Suspect]
     Active Substance: ISATUXIMAB
     Dosage: 10 MILLIGRAM/KILOGRAM, BIWEEKLY (20 MILLIGRAM/KILOGRAM, QW)
     Route: 065
     Dates: start: 20230824, end: 20231005
  76. ISATUXIMAB [Suspect]
     Active Substance: ISATUXIMAB
     Dosage: 10 MILLIGRAM/KILOGRAM, BIWEEKLY (20 MILLIGRAM/KILOGRAM, QW)
     Route: 065
     Dates: start: 20230824, end: 20231005
  77. ISATUXIMAB [Suspect]
     Active Substance: ISATUXIMAB
     Dosage: 10 MILLIGRAM/KILOGRAM, BIWEEKLY (20 MILLIGRAM/KILOGRAM, QW)
     Route: 065
     Dates: start: 20230824, end: 20231005
  78. ISATUXIMAB [Suspect]
     Active Substance: ISATUXIMAB
     Dosage: 10 MILLIGRAM/KILOGRAM, BIWEEKLY (20 MILLIGRAM/KILOGRAM, QW)
     Dates: start: 20230824, end: 20231005
  79. ISATUXIMAB [Suspect]
     Active Substance: ISATUXIMAB
     Dosage: 10 MILLIGRAM/KILOGRAM, BIWEEKLY (20 MILLIGRAM/KILOGRAM, QW)
     Dates: start: 20230824, end: 20231005
  80. ISATUXIMAB [Suspect]
     Active Substance: ISATUXIMAB
     Dosage: 10 MILLIGRAM/KILOGRAM, BIWEEKLY (20 MILLIGRAM/KILOGRAM, QW)
     Route: 065
     Dates: start: 20230824, end: 20231005
  81. ISATUXIMAB [Suspect]
     Active Substance: ISATUXIMAB
     Dosage: 10 MILLIGRAM/KILOGRAM, BIWEEKLY (20 MILLIGRAM/KILOGRAM, QW)
     Route: 065
     Dates: start: 20231006, end: 20231029
  82. ISATUXIMAB [Suspect]
     Active Substance: ISATUXIMAB
     Dosage: 10 MILLIGRAM/KILOGRAM, BIWEEKLY (20 MILLIGRAM/KILOGRAM, QW)
     Dates: start: 20231006, end: 20231029
  83. ISATUXIMAB [Suspect]
     Active Substance: ISATUXIMAB
     Dosage: 10 MILLIGRAM/KILOGRAM, BIWEEKLY (20 MILLIGRAM/KILOGRAM, QW)
     Dates: start: 20231006, end: 20231029
  84. ISATUXIMAB [Suspect]
     Active Substance: ISATUXIMAB
     Dosage: 10 MILLIGRAM/KILOGRAM, BIWEEKLY (20 MILLIGRAM/KILOGRAM, QW)
     Route: 065
     Dates: start: 20231006, end: 20231029
  85. ISATUXIMAB [Suspect]
     Active Substance: ISATUXIMAB
     Dosage: 10 MILLIGRAM/KILOGRAM, BIWEEKLY (20 MILLIGRAM/KILOGRAM, QW)
     Dates: start: 20231102, end: 20231127
  86. ISATUXIMAB [Suspect]
     Active Substance: ISATUXIMAB
     Dosage: 10 MILLIGRAM/KILOGRAM, BIWEEKLY (20 MILLIGRAM/KILOGRAM, QW)
     Dates: start: 20231102, end: 20231127
  87. ISATUXIMAB [Suspect]
     Active Substance: ISATUXIMAB
     Dosage: 10 MILLIGRAM/KILOGRAM, BIWEEKLY (20 MILLIGRAM/KILOGRAM, QW)
     Route: 065
     Dates: start: 20231102, end: 20231127
  88. ISATUXIMAB [Suspect]
     Active Substance: ISATUXIMAB
     Dosage: 10 MILLIGRAM/KILOGRAM, BIWEEKLY (20 MILLIGRAM/KILOGRAM, QW)
     Route: 065
     Dates: start: 20231102, end: 20231127
  89. ISATUXIMAB [Suspect]
     Active Substance: ISATUXIMAB
     Dosage: 10 MILLIGRAM/KILOGRAM, BIWEEKLY (20 MILLIGRAM/KILOGRAM, QW)
     Dates: start: 20231128, end: 20231206
  90. ISATUXIMAB [Suspect]
     Active Substance: ISATUXIMAB
     Dosage: 10 MILLIGRAM/KILOGRAM, BIWEEKLY (20 MILLIGRAM/KILOGRAM, QW)
     Dates: start: 20231128, end: 20231206
  91. ISATUXIMAB [Suspect]
     Active Substance: ISATUXIMAB
     Dosage: 10 MILLIGRAM/KILOGRAM, BIWEEKLY (20 MILLIGRAM/KILOGRAM, QW)
     Route: 065
     Dates: start: 20231128, end: 20231206
  92. ISATUXIMAB [Suspect]
     Active Substance: ISATUXIMAB
     Dosage: 10 MILLIGRAM/KILOGRAM, BIWEEKLY (20 MILLIGRAM/KILOGRAM, QW)
     Route: 065
     Dates: start: 20231128, end: 20231206
  93. ISATUXIMAB [Suspect]
     Active Substance: ISATUXIMAB
     Dosage: 10 MILLIGRAM/KILOGRAM, BIWEEKLY (20 MILLIGRAM/KILOGRAM, QW)
     Dates: start: 20231207, end: 20240103
  94. ISATUXIMAB [Suspect]
     Active Substance: ISATUXIMAB
     Dosage: 10 MILLIGRAM/KILOGRAM, BIWEEKLY (20 MILLIGRAM/KILOGRAM, QW)
     Dates: start: 20231207, end: 20240103
  95. ISATUXIMAB [Suspect]
     Active Substance: ISATUXIMAB
     Dosage: 10 MILLIGRAM/KILOGRAM, BIWEEKLY (20 MILLIGRAM/KILOGRAM, QW)
     Route: 065
     Dates: start: 20231207, end: 20240103
  96. ISATUXIMAB [Suspect]
     Active Substance: ISATUXIMAB
     Dosage: 10 MILLIGRAM/KILOGRAM, BIWEEKLY (20 MILLIGRAM/KILOGRAM, QW)
     Route: 065
     Dates: start: 20231207, end: 20240103
  97. ISATUXIMAB [Suspect]
     Active Substance: ISATUXIMAB
     Dosage: 10 MILLIGRAM/KILOGRAM, BIWEEKLY (20 MILLIGRAM/KILOGRAM, QW)
     Route: 065
     Dates: start: 20240104, end: 20240207
  98. ISATUXIMAB [Suspect]
     Active Substance: ISATUXIMAB
     Dosage: 10 MILLIGRAM/KILOGRAM, BIWEEKLY (20 MILLIGRAM/KILOGRAM, QW)
     Dates: start: 20240104, end: 20240207
  99. ISATUXIMAB [Suspect]
     Active Substance: ISATUXIMAB
     Dosage: 10 MILLIGRAM/KILOGRAM, BIWEEKLY (20 MILLIGRAM/KILOGRAM, QW)
     Dates: start: 20240104, end: 20240207
  100. ISATUXIMAB [Suspect]
     Active Substance: ISATUXIMAB
     Dosage: 10 MILLIGRAM/KILOGRAM, BIWEEKLY (20 MILLIGRAM/KILOGRAM, QW)
     Route: 065
     Dates: start: 20240104, end: 20240207
  101. ISATUXIMAB [Suspect]
     Active Substance: ISATUXIMAB
     Dosage: 10 MILLIGRAM/KILOGRAM, BIWEEKLY (20 MILLIGRAM/KILOGRAM, QW)
     Route: 065
     Dates: start: 20240208, end: 20240306
  102. ISATUXIMAB [Suspect]
     Active Substance: ISATUXIMAB
     Dosage: 10 MILLIGRAM/KILOGRAM, BIWEEKLY (20 MILLIGRAM/KILOGRAM, QW)
     Dates: start: 20240208, end: 20240306
  103. ISATUXIMAB [Suspect]
     Active Substance: ISATUXIMAB
     Dosage: 10 MILLIGRAM/KILOGRAM, BIWEEKLY (20 MILLIGRAM/KILOGRAM, QW)
     Dates: start: 20240208, end: 20240306
  104. ISATUXIMAB [Suspect]
     Active Substance: ISATUXIMAB
     Dosage: 10 MILLIGRAM/KILOGRAM, BIWEEKLY (20 MILLIGRAM/KILOGRAM, QW)
     Route: 065
     Dates: start: 20240208, end: 20240306
  105. ISATUXIMAB [Suspect]
     Active Substance: ISATUXIMAB
     Dosage: 10 MILLIGRAM/KILOGRAM, BIWEEKLY (20 MILLIGRAM/KILOGRAM, QW)
     Dates: start: 20240307, end: 20240320
  106. ISATUXIMAB [Suspect]
     Active Substance: ISATUXIMAB
     Dosage: 10 MILLIGRAM/KILOGRAM, BIWEEKLY (20 MILLIGRAM/KILOGRAM, QW)
     Dates: start: 20240307, end: 20240320
  107. ISATUXIMAB [Suspect]
     Active Substance: ISATUXIMAB
     Dosage: 10 MILLIGRAM/KILOGRAM, BIWEEKLY (20 MILLIGRAM/KILOGRAM, QW)
     Route: 065
     Dates: start: 20240307, end: 20240320
  108. ISATUXIMAB [Suspect]
     Active Substance: ISATUXIMAB
     Dosage: 10 MILLIGRAM/KILOGRAM, BIWEEKLY (20 MILLIGRAM/KILOGRAM, QW)
     Route: 065
     Dates: start: 20240307, end: 20240320
  109. ISATUXIMAB [Suspect]
     Active Substance: ISATUXIMAB
     Dosage: 10 MILLIGRAM/KILOGRAM, BIWEEKLY (20 MILLIGRAM/KILOGRAM, QW)
     Dates: start: 20240411, end: 20240424
  110. ISATUXIMAB [Suspect]
     Active Substance: ISATUXIMAB
     Dosage: 10 MILLIGRAM/KILOGRAM, BIWEEKLY (20 MILLIGRAM/KILOGRAM, QW)
     Route: 065
     Dates: start: 20240411, end: 20240424
  111. ISATUXIMAB [Suspect]
     Active Substance: ISATUXIMAB
     Dosage: 10 MILLIGRAM/KILOGRAM, BIWEEKLY (20 MILLIGRAM/KILOGRAM, QW)
     Dates: start: 20240411, end: 20240424
  112. ISATUXIMAB [Suspect]
     Active Substance: ISATUXIMAB
     Dosage: 10 MILLIGRAM/KILOGRAM, BIWEEKLY (20 MILLIGRAM/KILOGRAM, QW)
     Route: 065
     Dates: start: 20240411, end: 20240424
  113. POMALIDOMIDE [Suspect]
     Active Substance: POMALIDOMIDE
     Indication: Plasma cell myeloma refractory
     Dosage: 4 MILLIGRAM, QD
     Route: 065
     Dates: start: 20220926, end: 20221016
  114. POMALIDOMIDE [Suspect]
     Active Substance: POMALIDOMIDE
     Dosage: 4 MILLIGRAM, QD
     Dates: start: 20220926, end: 20221016
  115. POMALIDOMIDE [Suspect]
     Active Substance: POMALIDOMIDE
     Dosage: 4 MILLIGRAM, QD
     Dates: start: 20220926, end: 20221016
  116. POMALIDOMIDE [Suspect]
     Active Substance: POMALIDOMIDE
     Dosage: 4 MILLIGRAM, QD
     Route: 065
     Dates: start: 20220926, end: 20221016
  117. POMALIDOMIDE [Suspect]
     Active Substance: POMALIDOMIDE
     Dosage: 4 MILLIGRAM, QD
     Dates: start: 20221026, end: 20221114
  118. POMALIDOMIDE [Suspect]
     Active Substance: POMALIDOMIDE
     Dosage: 4 MILLIGRAM, QD
     Dates: start: 20221026, end: 20221114
  119. POMALIDOMIDE [Suspect]
     Active Substance: POMALIDOMIDE
     Dosage: 4 MILLIGRAM, QD
     Route: 065
     Dates: start: 20221026, end: 20221114
  120. POMALIDOMIDE [Suspect]
     Active Substance: POMALIDOMIDE
     Dosage: 4 MILLIGRAM, QD
     Route: 065
     Dates: start: 20221026, end: 20221114
  121. POMALIDOMIDE [Suspect]
     Active Substance: POMALIDOMIDE
     Dosage: 4 MILLIGRAM, QD
     Dates: start: 20221122, end: 20230119
  122. POMALIDOMIDE [Suspect]
     Active Substance: POMALIDOMIDE
     Dosage: 4 MILLIGRAM, QD
     Route: 065
     Dates: start: 20221122, end: 20230119
  123. POMALIDOMIDE [Suspect]
     Active Substance: POMALIDOMIDE
     Dosage: 4 MILLIGRAM, QD
     Dates: start: 20221122, end: 20230119
  124. POMALIDOMIDE [Suspect]
     Active Substance: POMALIDOMIDE
     Dosage: 4 MILLIGRAM, QD
     Route: 065
     Dates: start: 20221122, end: 20230119
  125. POMALIDOMIDE [Suspect]
     Active Substance: POMALIDOMIDE
     Dosage: 4 MILLIGRAM, QD
     Dates: start: 20230120, end: 20230202
  126. POMALIDOMIDE [Suspect]
     Active Substance: POMALIDOMIDE
     Dosage: 4 MILLIGRAM, QD
     Dates: start: 20230120, end: 20230202
  127. POMALIDOMIDE [Suspect]
     Active Substance: POMALIDOMIDE
     Dosage: 4 MILLIGRAM, QD
     Route: 065
     Dates: start: 20230120, end: 20230202
  128. POMALIDOMIDE [Suspect]
     Active Substance: POMALIDOMIDE
     Dosage: 4 MILLIGRAM, QD
     Route: 065
     Dates: start: 20230120, end: 20230202
  129. POMALIDOMIDE [Suspect]
     Active Substance: POMALIDOMIDE
     Dosage: 4 MILLIGRAM, QD
     Dates: start: 20230217, end: 20230302
  130. POMALIDOMIDE [Suspect]
     Active Substance: POMALIDOMIDE
     Dosage: 4 MILLIGRAM, QD
     Dates: start: 20230217, end: 20230302
  131. POMALIDOMIDE [Suspect]
     Active Substance: POMALIDOMIDE
     Dosage: 4 MILLIGRAM, QD
     Route: 065
     Dates: start: 20230217, end: 20230302
  132. POMALIDOMIDE [Suspect]
     Active Substance: POMALIDOMIDE
     Dosage: 4 MILLIGRAM, QD
     Route: 065
     Dates: start: 20230217, end: 20230302
  133. POMALIDOMIDE [Suspect]
     Active Substance: POMALIDOMIDE
     Dosage: 4 MILLIGRAM, QD
     Dates: start: 20230602, end: 20230615
  134. POMALIDOMIDE [Suspect]
     Active Substance: POMALIDOMIDE
     Dosage: 4 MILLIGRAM, QD
     Dates: start: 20230602, end: 20230615
  135. POMALIDOMIDE [Suspect]
     Active Substance: POMALIDOMIDE
     Dosage: 4 MILLIGRAM, QD
     Route: 065
     Dates: start: 20230602, end: 20230615
  136. POMALIDOMIDE [Suspect]
     Active Substance: POMALIDOMIDE
     Dosage: 4 MILLIGRAM, QD
     Route: 065
     Dates: start: 20230602, end: 20230615
  137. POMALIDOMIDE [Suspect]
     Active Substance: POMALIDOMIDE
     Dosage: 4 MILLIGRAM, QD
     Dates: start: 20230726, end: 20230823
  138. POMALIDOMIDE [Suspect]
     Active Substance: POMALIDOMIDE
     Dosage: 4 MILLIGRAM, QD
     Dates: start: 20230726, end: 20230823
  139. POMALIDOMIDE [Suspect]
     Active Substance: POMALIDOMIDE
     Dosage: 4 MILLIGRAM, QD
     Route: 065
     Dates: start: 20230726, end: 20230823
  140. POMALIDOMIDE [Suspect]
     Active Substance: POMALIDOMIDE
     Dosage: 4 MILLIGRAM, QD
     Route: 065
     Dates: start: 20230726, end: 20230823
  141. POMALIDOMIDE [Suspect]
     Active Substance: POMALIDOMIDE
     Dosage: 4 MILLIGRAM, QD
     Route: 065
     Dates: start: 20230824, end: 20231005
  142. POMALIDOMIDE [Suspect]
     Active Substance: POMALIDOMIDE
     Dosage: 4 MILLIGRAM, QD
     Dates: start: 20230824, end: 20231005
  143. POMALIDOMIDE [Suspect]
     Active Substance: POMALIDOMIDE
     Dosage: 4 MILLIGRAM, QD
     Dates: start: 20230824, end: 20231005
  144. POMALIDOMIDE [Suspect]
     Active Substance: POMALIDOMIDE
     Dosage: 4 MILLIGRAM, QD
     Route: 065
     Dates: start: 20230824, end: 20231005
  145. POMALIDOMIDE [Suspect]
     Active Substance: POMALIDOMIDE
     Dosage: 4 MILLIGRAM, QD
     Route: 065
     Dates: start: 20231026, end: 20231101
  146. POMALIDOMIDE [Suspect]
     Active Substance: POMALIDOMIDE
     Dosage: 4 MILLIGRAM, QD
     Dates: start: 20231026, end: 20231101
  147. POMALIDOMIDE [Suspect]
     Active Substance: POMALIDOMIDE
     Dosage: 4 MILLIGRAM, QD
     Dates: start: 20231026, end: 20231101
  148. POMALIDOMIDE [Suspect]
     Active Substance: POMALIDOMIDE
     Dosage: 4 MILLIGRAM, QD
     Route: 065
     Dates: start: 20231026, end: 20231101
  149. POMALIDOMIDE [Suspect]
     Active Substance: POMALIDOMIDE
     Dosage: 4 MILLIGRAM, QD
     Dates: start: 20231006, end: 20231029
  150. POMALIDOMIDE [Suspect]
     Active Substance: POMALIDOMIDE
     Dosage: 4 MILLIGRAM, QD
     Dates: start: 20231006, end: 20231029
  151. POMALIDOMIDE [Suspect]
     Active Substance: POMALIDOMIDE
     Dosage: 4 MILLIGRAM, QD
     Route: 065
     Dates: start: 20231006, end: 20231029
  152. POMALIDOMIDE [Suspect]
     Active Substance: POMALIDOMIDE
     Dosage: 4 MILLIGRAM, QD
     Route: 065
     Dates: start: 20231006, end: 20231029
  153. POMALIDOMIDE [Suspect]
     Active Substance: POMALIDOMIDE
     Dosage: 4 MILLIGRAM, QD
     Dates: start: 20231030, end: 20231127
  154. POMALIDOMIDE [Suspect]
     Active Substance: POMALIDOMIDE
     Dosage: 4 MILLIGRAM, QD
     Route: 065
     Dates: start: 20231030, end: 20231127
  155. POMALIDOMIDE [Suspect]
     Active Substance: POMALIDOMIDE
     Dosage: 4 MILLIGRAM, QD
     Dates: start: 20231030, end: 20231127
  156. POMALIDOMIDE [Suspect]
     Active Substance: POMALIDOMIDE
     Dosage: 4 MILLIGRAM, QD
     Route: 065
     Dates: start: 20231030, end: 20231127
  157. POMALIDOMIDE [Suspect]
     Active Substance: POMALIDOMIDE
     Dosage: 4 MILLIGRAM, QD
     Route: 065
     Dates: start: 20231128, end: 20231206
  158. POMALIDOMIDE [Suspect]
     Active Substance: POMALIDOMIDE
     Dosage: 4 MILLIGRAM, QD
     Dates: start: 20231128, end: 20231206
  159. POMALIDOMIDE [Suspect]
     Active Substance: POMALIDOMIDE
     Dosage: 4 MILLIGRAM, QD
     Dates: start: 20231128, end: 20231206
  160. POMALIDOMIDE [Suspect]
     Active Substance: POMALIDOMIDE
     Dosage: 4 MILLIGRAM, QD
     Route: 065
     Dates: start: 20231128, end: 20231206
  161. POMALIDOMIDE [Suspect]
     Active Substance: POMALIDOMIDE
     Dosage: 4 MILLIGRAM, QD
     Route: 065
     Dates: start: 20240104, end: 20240117
  162. POMALIDOMIDE [Suspect]
     Active Substance: POMALIDOMIDE
     Dosage: 4 MILLIGRAM, QD
     Dates: start: 20240104, end: 20240117
  163. POMALIDOMIDE [Suspect]
     Active Substance: POMALIDOMIDE
     Dosage: 4 MILLIGRAM, QD
     Dates: start: 20240104, end: 20240117
  164. POMALIDOMIDE [Suspect]
     Active Substance: POMALIDOMIDE
     Dosage: 4 MILLIGRAM, QD
     Route: 065
     Dates: start: 20240104, end: 20240117
  165. POMALIDOMIDE [Suspect]
     Active Substance: POMALIDOMIDE
     Dosage: 4 MILLIGRAM, QD
     Route: 065
     Dates: start: 20240208, end: 20240301
  166. POMALIDOMIDE [Suspect]
     Active Substance: POMALIDOMIDE
     Dosage: 4 MILLIGRAM, QD
     Dates: start: 20240208, end: 20240301
  167. POMALIDOMIDE [Suspect]
     Active Substance: POMALIDOMIDE
     Dosage: 4 MILLIGRAM, QD
     Dates: start: 20240208, end: 20240301
  168. POMALIDOMIDE [Suspect]
     Active Substance: POMALIDOMIDE
     Dosage: 4 MILLIGRAM, QD
     Route: 065
     Dates: start: 20240208, end: 20240301
  169. POMALIDOMIDE [Suspect]
     Active Substance: POMALIDOMIDE
     Dosage: 4 MILLIGRAM, QD
     Dates: start: 20240307, end: 20240328
  170. POMALIDOMIDE [Suspect]
     Active Substance: POMALIDOMIDE
     Dosage: 4 MILLIGRAM, QD
     Dates: start: 20240307, end: 20240328
  171. POMALIDOMIDE [Suspect]
     Active Substance: POMALIDOMIDE
     Dosage: 4 MILLIGRAM, QD
     Route: 065
     Dates: start: 20240307, end: 20240328
  172. POMALIDOMIDE [Suspect]
     Active Substance: POMALIDOMIDE
     Dosage: 4 MILLIGRAM, QD
     Route: 065
     Dates: start: 20240307, end: 20240328
  173. POMALIDOMIDE [Suspect]
     Active Substance: POMALIDOMIDE
     Dosage: 4 MILLIGRAM, QD
     Dates: start: 20240411, end: 20240501
  174. POMALIDOMIDE [Suspect]
     Active Substance: POMALIDOMIDE
     Dosage: 4 MILLIGRAM, QD
     Dates: start: 20240411, end: 20240501
  175. POMALIDOMIDE [Suspect]
     Active Substance: POMALIDOMIDE
     Dosage: 4 MILLIGRAM, QD
     Route: 065
     Dates: start: 20240411, end: 20240501
  176. POMALIDOMIDE [Suspect]
     Active Substance: POMALIDOMIDE
     Dosage: 4 MILLIGRAM, QD
     Route: 065
     Dates: start: 20240411, end: 20240501
  177. VALACYCLOVIR HYDROCHLORIDE [Concomitant]
     Active Substance: VALACYCLOVIR HYDROCHLORIDE
     Indication: Prophylaxis
     Dosage: UNK
  178. VALACYCLOVIR HYDROCHLORIDE [Concomitant]
     Active Substance: VALACYCLOVIR HYDROCHLORIDE
     Dosage: UNK
     Route: 065
  179. VALACYCLOVIR HYDROCHLORIDE [Concomitant]
     Active Substance: VALACYCLOVIR HYDROCHLORIDE
     Dosage: UNK
     Route: 065
  180. VALACYCLOVIR HYDROCHLORIDE [Concomitant]
     Active Substance: VALACYCLOVIR HYDROCHLORIDE
     Dosage: UNK
  181. ESOMEPRAZOLE [Concomitant]
     Active Substance: ESOMEPRAZOLE
     Indication: Gastrooesophageal reflux disease
     Dosage: UNK
  182. ESOMEPRAZOLE [Concomitant]
     Active Substance: ESOMEPRAZOLE
     Dosage: UNK
     Route: 065
  183. ESOMEPRAZOLE [Concomitant]
     Active Substance: ESOMEPRAZOLE
     Dosage: UNK
     Route: 065
  184. ESOMEPRAZOLE [Concomitant]
     Active Substance: ESOMEPRAZOLE
     Dosage: UNK
  185. SKENAN [Concomitant]
     Active Substance: MORPHINE SULFATE
     Indication: Analgesic therapy
     Dosage: UNK
  186. SKENAN [Concomitant]
     Active Substance: MORPHINE SULFATE
     Dosage: UNK
     Route: 065
  187. SKENAN [Concomitant]
     Active Substance: MORPHINE SULFATE
     Dosage: UNK
     Route: 065
  188. SKENAN [Concomitant]
     Active Substance: MORPHINE SULFATE
     Dosage: UNK
  189. MORPHINE SULFATE [Concomitant]
     Active Substance: MORPHINE SULFATE
     Indication: Medication overuse headache
     Dosage: UNK
  190. MORPHINE SULFATE [Concomitant]
     Active Substance: MORPHINE SULFATE
     Dosage: UNK
     Route: 065
  191. MORPHINE SULFATE [Concomitant]
     Active Substance: MORPHINE SULFATE
     Dosage: UNK
     Route: 065
  192. MORPHINE SULFATE [Concomitant]
     Active Substance: MORPHINE SULFATE
     Dosage: UNK
  193. ELIQUIS [Concomitant]
     Active Substance: APIXABAN
     Indication: Thrombosis
     Dosage: UNK
     Dates: start: 20220929, end: 20230307
  194. ELIQUIS [Concomitant]
     Active Substance: APIXABAN
     Dosage: UNK
     Dates: start: 20220929, end: 20230307
  195. ELIQUIS [Concomitant]
     Active Substance: APIXABAN
     Dosage: UNK
     Route: 065
     Dates: start: 20220929, end: 20230307
  196. ELIQUIS [Concomitant]
     Active Substance: APIXABAN
     Dosage: UNK
     Route: 065
     Dates: start: 20220929, end: 20230307
  197. ELIQUIS [Concomitant]
     Active Substance: APIXABAN
     Dosage: UNK
  198. ELIQUIS [Concomitant]
     Active Substance: APIXABAN
     Dosage: UNK
  199. ELIQUIS [Concomitant]
     Active Substance: APIXABAN
     Dosage: UNK
     Route: 065
  200. ELIQUIS [Concomitant]
     Active Substance: APIXABAN
     Dosage: UNK
     Route: 065
  201. ERYTHROPOIETIN [Concomitant]
     Active Substance: ERYTHROPOIETIN
     Indication: Marrow hyperplasia
     Dosage: UNK
  202. ERYTHROPOIETIN [Concomitant]
     Active Substance: ERYTHROPOIETIN
     Dosage: UNK
     Route: 065
  203. ERYTHROPOIETIN [Concomitant]
     Active Substance: ERYTHROPOIETIN
     Dosage: UNK
     Route: 065
  204. ERYTHROPOIETIN [Concomitant]
     Active Substance: ERYTHROPOIETIN
     Dosage: UNK
  205. PENTACARINAT [Concomitant]
     Active Substance: PENTAMIDINE ISETHIONATE
     Indication: Prophylaxis
     Dosage: UNK
  206. PENTACARINAT [Concomitant]
     Active Substance: PENTAMIDINE ISETHIONATE
     Dosage: UNK
     Route: 065
  207. PENTACARINAT [Concomitant]
     Active Substance: PENTAMIDINE ISETHIONATE
     Dosage: UNK
     Route: 065
  208. PENTACARINAT [Concomitant]
     Active Substance: PENTAMIDINE ISETHIONATE
     Dosage: UNK
  209. DEXCHLORPHENIRAMINE MALEATE [Concomitant]
     Active Substance: DEXCHLORPHENIRAMINE MALEATE
     Indication: Antiallergic therapy
     Dosage: UNK UNK, CYCLE
     Dates: start: 20220926
  210. DEXCHLORPHENIRAMINE MALEATE [Concomitant]
     Active Substance: DEXCHLORPHENIRAMINE MALEATE
     Dosage: UNK UNK, CYCLE
     Route: 065
     Dates: start: 20220926
  211. DEXCHLORPHENIRAMINE MALEATE [Concomitant]
     Active Substance: DEXCHLORPHENIRAMINE MALEATE
     Dosage: UNK UNK, CYCLE
     Route: 065
     Dates: start: 20220926
  212. DEXCHLORPHENIRAMINE MALEATE [Concomitant]
     Active Substance: DEXCHLORPHENIRAMINE MALEATE
     Dosage: UNK UNK, CYCLE
     Dates: start: 20220926
  213. ACETAMINOPHEN [Concomitant]
     Active Substance: ACETAMINOPHEN
     Indication: Analgesic therapy
     Dosage: UNK UNK, CYCLE
     Dates: start: 20220926
  214. ACETAMINOPHEN [Concomitant]
     Active Substance: ACETAMINOPHEN
     Dosage: UNK UNK, CYCLE
     Route: 065
     Dates: start: 20220926
  215. ACETAMINOPHEN [Concomitant]
     Active Substance: ACETAMINOPHEN
     Dosage: UNK UNK, CYCLE
     Route: 065
     Dates: start: 20220926
  216. ACETAMINOPHEN [Concomitant]
     Active Substance: ACETAMINOPHEN
     Dosage: UNK UNK, CYCLE
     Dates: start: 20220926
  217. AMIODARONE [Concomitant]
     Active Substance: AMIODARONE
     Indication: Cardiovascular event prophylaxis
     Dosage: UNK
  218. AMIODARONE [Concomitant]
     Active Substance: AMIODARONE
     Dosage: UNK
  219. AMIODARONE [Concomitant]
     Active Substance: AMIODARONE
     Dosage: UNK
     Route: 065
  220. AMIODARONE [Concomitant]
     Active Substance: AMIODARONE
     Dosage: UNK
     Route: 065
  221. AMIODARONE [Concomitant]
     Active Substance: AMIODARONE
     Dosage: UNK
     Dates: start: 20230403, end: 20230413
  222. AMIODARONE [Concomitant]
     Active Substance: AMIODARONE
     Dosage: UNK
     Dates: start: 20230403, end: 20230413
  223. AMIODARONE [Concomitant]
     Active Substance: AMIODARONE
     Dosage: UNK
     Route: 065
     Dates: start: 20230403, end: 20230413
  224. AMIODARONE [Concomitant]
     Active Substance: AMIODARONE
     Dosage: UNK
     Route: 065
     Dates: start: 20230403, end: 20230413
  225. FUROSEMIDE [Concomitant]
     Active Substance: FUROSEMIDE
     Dosage: UNK
  226. FUROSEMIDE [Concomitant]
     Active Substance: FUROSEMIDE
     Dosage: UNK
     Route: 065
  227. FUROSEMIDE [Concomitant]
     Active Substance: FUROSEMIDE
     Dosage: UNK
     Route: 065
  228. FUROSEMIDE [Concomitant]
     Active Substance: FUROSEMIDE
     Dosage: UNK
  229. LOPERAMIDE [Concomitant]
     Active Substance: LOPERAMIDE
     Indication: Diarrhoea
     Dosage: UNK
  230. LOPERAMIDE [Concomitant]
     Active Substance: LOPERAMIDE
     Dosage: UNK
     Route: 065
  231. LOPERAMIDE [Concomitant]
     Active Substance: LOPERAMIDE
     Dosage: UNK
     Route: 065
  232. LOPERAMIDE [Concomitant]
     Active Substance: LOPERAMIDE
     Dosage: UNK
  233. LEVOFLOXACIN [Concomitant]
     Active Substance: LEVOFLOXACIN
     Indication: Infection
     Dosage: UNK
  234. LEVOFLOXACIN [Concomitant]
     Active Substance: LEVOFLOXACIN
     Dosage: UNK
     Route: 065
  235. LEVOFLOXACIN [Concomitant]
     Active Substance: LEVOFLOXACIN
     Dosage: UNK
     Route: 065
  236. LEVOFLOXACIN [Concomitant]
     Active Substance: LEVOFLOXACIN
     Dosage: UNK
  237. JARDIANCE [Concomitant]
     Active Substance: EMPAGLIFLOZIN
     Indication: Prophylaxis
     Dosage: UNK
  238. JARDIANCE [Concomitant]
     Active Substance: EMPAGLIFLOZIN
     Dosage: UNK
     Route: 065
  239. JARDIANCE [Concomitant]
     Active Substance: EMPAGLIFLOZIN
     Dosage: UNK
     Route: 065
  240. JARDIANCE [Concomitant]
     Active Substance: EMPAGLIFLOZIN
     Dosage: UNK
  241. RAMIPRIL [Concomitant]
     Active Substance: RAMIPRIL
     Indication: Prophylaxis
     Dosage: UNK
  242. RAMIPRIL [Concomitant]
     Active Substance: RAMIPRIL
     Dosage: UNK
     Route: 065
  243. RAMIPRIL [Concomitant]
     Active Substance: RAMIPRIL
     Dosage: UNK
     Route: 065
  244. RAMIPRIL [Concomitant]
     Active Substance: RAMIPRIL
     Dosage: UNK
  245. VALACYCLOVIR HYDROCHLORIDE [Concomitant]
     Active Substance: VALACYCLOVIR HYDROCHLORIDE
     Indication: Ischaemia
     Dosage: UNK
  246. VALACYCLOVIR HYDROCHLORIDE [Concomitant]
     Active Substance: VALACYCLOVIR HYDROCHLORIDE
     Dosage: UNK
     Route: 065
  247. VALACYCLOVIR HYDROCHLORIDE [Concomitant]
     Active Substance: VALACYCLOVIR HYDROCHLORIDE
     Dosage: UNK
     Route: 065
  248. VALACYCLOVIR HYDROCHLORIDE [Concomitant]
     Active Substance: VALACYCLOVIR HYDROCHLORIDE
     Dosage: UNK
  249. FUNGIZONE [Concomitant]
     Active Substance: AMPHOTERICIN B
     Indication: Antifungal treatment
     Dosage: UNK
  250. FUNGIZONE [Concomitant]
     Active Substance: AMPHOTERICIN B
     Dosage: UNK
     Route: 065
  251. FUNGIZONE [Concomitant]
     Active Substance: AMPHOTERICIN B
     Dosage: UNK
     Route: 065
  252. FUNGIZONE [Concomitant]
     Active Substance: AMPHOTERICIN B
     Dosage: UNK
  253. SODIUM BICARBONATE [Concomitant]
     Active Substance: SODIUM BICARBONATE
     Dosage: UNK (UNKNOWN DATE IN FEB-2023)
  254. SODIUM BICARBONATE [Concomitant]
     Active Substance: SODIUM BICARBONATE
     Dosage: UNK (UNKNOWN DATE IN FEB-2023)
     Route: 065
  255. SODIUM BICARBONATE [Concomitant]
     Active Substance: SODIUM BICARBONATE
     Dosage: UNK (UNKNOWN DATE IN FEB-2023)
     Route: 065
  256. SODIUM BICARBONATE [Concomitant]
     Active Substance: SODIUM BICARBONATE
     Dosage: UNK (UNKNOWN DATE IN FEB-2023)
  257. AMOXICILLIN [Concomitant]
     Active Substance: AMOXICILLIN
     Dosage: UNK (UNKNOWN DATE FEB-2023)
  258. AMOXICILLIN [Concomitant]
     Active Substance: AMOXICILLIN
     Dosage: UNK (UNKNOWN DATE FEB-2023)
     Route: 065
  259. AMOXICILLIN [Concomitant]
     Active Substance: AMOXICILLIN
     Dosage: UNK (UNKNOWN DATE FEB-2023)
     Route: 065
  260. AMOXICILLIN [Concomitant]
     Active Substance: AMOXICILLIN
     Dosage: UNK (UNKNOWN DATE FEB-2023)
  261. ESOMEPRAZOLE [Concomitant]
     Active Substance: ESOMEPRAZOLE
     Dosage: UNK
  262. ESOMEPRAZOLE [Concomitant]
     Active Substance: ESOMEPRAZOLE
     Dosage: UNK
     Route: 065
  263. ESOMEPRAZOLE [Concomitant]
     Active Substance: ESOMEPRAZOLE
     Dosage: UNK
     Route: 065
  264. ESOMEPRAZOLE [Concomitant]
     Active Substance: ESOMEPRAZOLE
     Dosage: UNK
  265. TAFAMIDIS [Concomitant]
     Active Substance: TAFAMIDIS
     Dosage: UNK
  266. TAFAMIDIS [Concomitant]
     Active Substance: TAFAMIDIS
     Dosage: UNK
     Route: 065
  267. TAFAMIDIS [Concomitant]
     Active Substance: TAFAMIDIS
     Dosage: UNK
     Route: 065
  268. TAFAMIDIS [Concomitant]
     Active Substance: TAFAMIDIS
     Dosage: UNK

REACTIONS (5)
  - Neutropenia [Recovered/Resolved]
  - Tachycardia [Recovered/Resolved]
  - Dyspnoea [Recovered/Resolved]
  - Streptococcus test positive [Recovered/Resolved]
  - Cardiac failure [Recovered/Resolved]

NARRATIVE: CASE EVENT DATE: 20230203
